FAERS Safety Report 10022539 (Version 1)
Quarter: 2014Q1

REPORT INFORMATION
  Report Type: Spontaneous
  Country: US (occurrence: US)
  Receive Date: 20140319
  Receipt Date: 20140319
  Transmission Date: 20141002
  Serious: Yes (Hospitalization)
  Sender: FDA-Public Use
  Company Number: US-B.I. PHARMACEUTICALS,INC./RIDGEFIELD-2014-BI-11524BP

PATIENT
  Age: 80 Year
  Sex: Male

DRUGS (3)
  1. PRADAXA [Suspect]
     Indication: ATRIAL FIBRILLATION
     Dosage: 300 MG
     Route: 048
     Dates: start: 2014
  2. PRADAXA [Suspect]
     Dosage: 150 MG
     Route: 048
  3. AMIODARONE [Concomitant]
     Route: 065

REACTIONS (1)
  - Haemorrhage [Recovered/Resolved]
